FAERS Safety Report 13214624 (Version 2)
Quarter: 2017Q1

REPORT INFORMATION
  Report Type: Spontaneous
  Country: JP (occurrence: JP)
  Receive Date: 20170209
  Receipt Date: 20170222
  Transmission Date: 20170428
  Serious: Yes (Other)
  Sender: FDA-Public Use
  Company Number: JP-ALLERGAN-1704812US

PATIENT
  Age: 5 Decade
  Sex: Female

DRUGS (1)
  1. URSODEOXYCHOLIC ACID - BP [Suspect]
     Active Substance: URSODIOL
     Indication: BILIARY CIRRHOSIS PRIMARY
     Dosage: 600 MG, QD
     Route: 048
     Dates: start: 2007

REACTIONS (2)
  - Pulmonary fibrosis [Unknown]
  - Interstitial lung disease [Unknown]
